FAERS Safety Report 8019998-8 (Version None)
Quarter: 2012Q1

REPORT INFORMATION
  Report Type: 
  Country: None (occurrence: None)
  Receive Date: 20120103
  Receipt Date: 20111220
  Transmission Date: 20120608
  Serious: Yes (Other)
  Sender: FDA-Public Use
  Company Number: JP-MYLANLABS-2011S1024709

PATIENT
  Age: 65 Year
  Sex: Male

DRUGS (5)
  1. LATANOPROST [Suspect]
     Indication: GLAUCOMA
     Route: 047
     Dates: start: 20110817, end: 20111102
  2. FLUOROMETHOLONE [Concomitant]
     Indication: PRODUCT USED FOR UNKNOWN INDICATION
     Route: 047
     Dates: start: 20111102
  3. SANPILO [Concomitant]
     Indication: PRODUCT USED FOR UNKNOWN INDICATION
     Route: 047
     Dates: start: 20111102
  4. XALATAN [Concomitant]
     Indication: GLAUCOMA
  5. RUPOCK [Concomitant]
     Indication: PRODUCT USED FOR UNKNOWN INDICATION
     Route: 047
     Dates: start: 20110817, end: 20111102

REACTIONS (2)
  - GLAUCOMA [None]
  - VISUAL ACUITY REDUCED [None]
